FAERS Safety Report 5502579-5 (Version None)
Quarter: 2007Q4

REPORT INFORMATION
  Report Type: 
  Country: None (occurrence: None)
  Receive Date: 20071031
  Receipt Date: 20071023
  Transmission Date: 20080405
  Serious: Yes (Hospitalization)
  Sender: FDA-Public Use
  Company Number: PHRM2007FR02472

PATIENT
  Age: 18 Year
  Sex: Female

DRUGS (1)
  1. EXJADE [Suspect]
     Indication: IRON OVERLOAD
     Dosage: 1250 MG, QD
     Route: 048
     Dates: start: 20070301, end: 20070923

REACTIONS (10)
  - ACIDOSIS [None]
  - BLOOD PHOSPHORUS DECREASED [None]
  - CONSTIPATION [None]
  - DIZZINESS [None]
  - GLYCOSURIA [None]
  - HYPOKALAEMIA [None]
  - PARAESTHESIA [None]
  - PROTEINURIA [None]
  - RENAL TUBULAR DISORDER [None]
  - VOMITING [None]
